FAERS Safety Report 5076552-8 (Version None)
Quarter: 2006Q3

REPORT INFORMATION
  Report Type: 
  Country: None (occurrence: None)
  Receive Date: 20060808
  Receipt Date: 20060808
  Transmission Date: 20061208
  Serious: Yes (Life-Threatening, Hospitalization)
  Sender: FDA-Public Use
  Company Number: None

PATIENT
  Sex: Male
  Weight: 64 kg

DRUGS (3)
  1. ERBITUX [Suspect]
     Indication: METASTATIC SQUAMOUS CELL CARCINOMA
     Dosage: 68.1 MG ONCE IV
     Route: 042
     Dates: start: 20060802, end: 20060802
  2. HYZAAR [Concomitant]
  3. OXYCODONE HCL [Concomitant]

REACTIONS (5)
  - HYPOTENSION [None]
  - INFUSION RELATED REACTION [None]
  - OXYGEN SATURATION DECREASED [None]
  - PRURITUS [None]
  - RESTLESSNESS [None]
